FAERS Safety Report 5844505-5 (Version None)
Quarter: 2008Q3

REPORT INFORMATION
  Report Type: 
  Country: None (occurrence: None)
  Receive Date: 20080812
  Receipt Date: 20080717
  Transmission Date: 20090109
  Serious: Yes (Other)
  Sender: FDA-Public Use
  Company Number: 8035473

PATIENT
  Age: 9 Year
  Sex: Male
  Weight: 32.7 kg

DRUGS (1)
  1. METHYLPHENIDATE HCL [Suspect]
     Indication: ATTENTION DEFICIT/HYPERACTIVITY DISORDER
     Dosage: 20 MG ONCE

REACTIONS (4)
  - DIZZINESS [None]
  - ERYTHEMA [None]
  - HEADACHE [None]
  - WHEEZING [None]
